FAERS Safety Report 5319112-3 (Version None)
Quarter: 2007Q2

REPORT INFORMATION
  Report Type: 
  Country: None (occurrence: None)
  Receive Date: 20070508
  Receipt Date: 20070504
  Transmission Date: 20071010
  Serious: Yes (Other)
  Sender: FDA-Public Use
  Company Number: A0650277A

PATIENT
  Age: 41 Year
  Sex: Female

DRUGS (2)
  1. PAXIL [Suspect]
     Indication: ANXIETY
     Route: 048
  2. NARCOTIC [Suspect]
     Route: 048

REACTIONS (9)
  - AFFECTIVE DISORDER [None]
  - ANXIETY [None]
  - APATHY [None]
  - EMOTIONAL DISORDER [None]
  - EMOTIONAL DISTRESS [None]
  - FEELING OF DESPAIR [None]
  - FLAT AFFECT [None]
  - MENTAL IMPAIRMENT [None]
  - SUICIDE ATTEMPT [None]
